FAERS Safety Report 20343090 (Version 1)
Quarter: 2022Q1

REPORT INFORMATION
  Report Type: Spontaneous
  Country: None (occurrence: US)
  Receive Date: 20220117
  Receipt Date: 20220117
  Transmission Date: 20220424
  Serious: No
  Sender: FDA-Public Use
  Company Number: 2110123

PATIENT

DRUGS (1)
  1. SCRUB CARE EXIDINE-2 CHG [Suspect]
     Active Substance: CHLORHEXIDINE GLUCONATE
     Route: 003

REACTIONS (1)
  - Application site pain [Unknown]
